FAERS Safety Report 6892495-9 (Version None)
Quarter: 2010Q3

REPORT INFORMATION
  Report Type: 
  Country: None (occurrence: None)
  Receive Date: 20100731
  Receipt Date: 20080626
  Transmission Date: 20110219
  Serious: No
  Sender: FDA-Public Use
  Company Number: US-PFIZER INC-2008050637

PATIENT
  Sex: Male
  Weight: 74.84 kg

DRUGS (6)
  1. AMLODIPINE [Suspect]
     Indication: HYPERTENSION
  2. ATENOLOL [Concomitant]
  3. PLAVIX [Concomitant]
  4. CYCLOSPORINE [Concomitant]
  5. MAGNESIUM [Concomitant]
  6. VITAMINS [Concomitant]

REACTIONS (1)
  - MEDICATION RESIDUE [None]
